FAERS Safety Report 20597895 (Version 2)
Quarter: 2022Q2

REPORT INFORMATION
  Report Type: Report from Study
  Country: FR (occurrence: FR)
  Receive Date: 20220315
  Receipt Date: 20220414
  Transmission Date: 20220720
  Serious: Yes (Other)
  Sender: FDA-Public Use
  Company Number: FR-GILEAD-2022-0573511

PATIENT
  Age: 52 Year
  Sex: Female
  Weight: 75 kg

DRUGS (2)
  1. SACITUZUMAB GOVITECAN [Suspect]
     Active Substance: SACITUZUMAB GOVITECAN
     Indication: Triple negative breast cancer
     Dosage: 7.5 MG/KG
     Route: 042
     Dates: start: 20211230
  2. LYRICA [Concomitant]
     Active Substance: PREGABALIN
     Dosage: UNK
     Dates: start: 20210621

REACTIONS (1)
  - Hepatic cytolysis [Not Recovered/Not Resolved]

NARRATIVE: CASE EVENT DATE: 20220222
